FAERS Safety Report 9216823 (Version 3)
Quarter: 2013Q2

REPORT INFORMATION
  Report Type: Report from Study
  Country: DE (occurrence: DE)
  Receive Date: 20130408
  Receipt Date: 20130425
  Transmission Date: 20140414
  Serious: Yes (Death)
  Sender: FDA-Public Use
  Company Number: DE-AMGEN-DEUCT2013023276

PATIENT
  Sex: Male

DRUGS (15)
  1. PANITUMUMAB [Suspect]
     Indication: BILE DUCT CANCER
     Dosage: 9 MG/KG, UNK
     Route: 042
     Dates: start: 20120326, end: 20130311
  2. CISPLATIN [Concomitant]
     Indication: BILE DUCT CANCER
     Dosage: 25 MG/M2, UNK
     Route: 042
     Dates: start: 20120326, end: 20130328
  3. GEMCITABINE [Concomitant]
     Indication: BILE DUCT CANCER
     Dosage: 1000 MG/M2, UNK
     Route: 042
     Dates: start: 20120326, end: 20130318
  4. CONCOR [Concomitant]
     Dosage: 3.75 MG, QD
     Route: 048
     Dates: start: 2012, end: 20130331
  5. CIL [Concomitant]
     Dosage: 200 MG, QD
     Route: 048
     Dates: start: 2012, end: 20130331
  6. LISI [Concomitant]
     Dosage: UNK UNK, QD
     Route: 048
     Dates: start: 2012, end: 20130331
  7. ASS [Concomitant]
     Dosage: 100 MG, QD
     Route: 048
     Dates: start: 2012, end: 20130331
  8. JANUVIA [Concomitant]
     Dosage: 100 MG, QD
     Route: 048
     Dates: start: 2012, end: 20130331
  9. PRAVASTATIN [Concomitant]
     Dosage: 40 MG, QD
     Route: 048
     Dates: start: 2012, end: 20130331
  10. AMITRIPTYLINE [Concomitant]
     Dosage: 10 MG, QD
     Route: 048
     Dates: start: 2012, end: 20130331
  11. GABAPENTIN BIOMO [Concomitant]
     Dosage: 600 MG, QHS
     Route: 048
     Dates: start: 2012, end: 20130331
  12. ISDN [Concomitant]
     Dosage: 60 MG, QD
     Route: 048
     Dates: start: 20130107, end: 20130331
  13. AMCIDERM [Concomitant]
     Dosage: UNK UNK, AS NECESSARY
     Dates: start: 20130308, end: 20130331
  14. LANTUS [Concomitant]
     Dosage: UNK UNK, AS NECESSARY
     Dates: start: 2012, end: 20130331
  15. ACTRAPID [Concomitant]
     Dosage: UNK UNK, AS NECESSARY
     Dates: start: 2012, end: 20130331

REACTIONS (1)
  - Myocardial infarction [Fatal]
